FAERS Safety Report 15010128 (Version 3)
Quarter: 2019Q2

REPORT INFORMATION
  Report Type: Spontaneous
  Country: US (occurrence: US)
  Receive Date: 20180614
  Receipt Date: 20190426
  Transmission Date: 20190711
  Serious: Yes (Other)
  Sender: FDA-Public Use
  Company Number: US-PFIZER INC-2018243014

PATIENT
  Age: 65 Year
  Sex: Female

DRUGS (3)
  1. EFFEXOR XR [Suspect]
     Active Substance: VENLAFAXINE HYDROCHLORIDE
     Indication: DEPRESSION
     Dosage: 150 MG, DAILY(150 MG 2RX TAKEN DAILY)
     Dates: start: 2017
  2. EFFEXOR XR [Suspect]
     Active Substance: VENLAFAXINE HYDROCHLORIDE
     Indication: ANXIETY
     Dosage: 225 MG, DAILY (150MG CAPSULE + 75MG CAPSULE)
  3. INSULIN [Concomitant]
     Active Substance: INSULIN NOS
     Dosage: UNK

REACTIONS (12)
  - Hyperhidrosis [Recovered/Resolved]
  - Abnormal behaviour [Unknown]
  - Chills [Recovered/Resolved]
  - Emotional disorder [Unknown]
  - Fear [Recovered/Resolved]
  - Dehydration [Unknown]
  - Withdrawal syndrome [Unknown]
  - Suicidal ideation [Unknown]
  - Crying [Unknown]
  - Nausea [Recovered/Resolved]
  - Mood swings [Recovered/Resolved]
  - Malaise [Recovered/Resolved]
